FAERS Safety Report 5484368-3 (Version None)
Quarter: 2007Q4

REPORT INFORMATION
  Report Type: 
  Country: None (occurrence: None)
  Receive Date: 20071009
  Receipt Date: 20070928
  Transmission Date: 20080405
  Serious: No
  Sender: FDA-Public Use
  Company Number: 2007-164980-NL

PATIENT
  Age: 35 Year
  Sex: Male

DRUGS (4)
  1. ROCURONIUM BROMIDE [Suspect]
     Indication: INDUCTION OF ANAESTHESIA
  2. PROPOFOL [Suspect]
     Indication: INDUCTION OF ANAESTHESIA
  3. FENTANYL [Suspect]
     Indication: INDUCTION OF ANAESTHESIA
  4. MIDAZOLAM [Suspect]
     Indication: INDUCTION OF ANAESTHESIA

REACTIONS (2)
  - LARYNGOSPASM [None]
  - OXYGEN SATURATION DECREASED [None]
